FAERS Safety Report 17872440 (Version 2)
Quarter: 2020Q2

REPORT INFORMATION
  Report Type: Spontaneous
  Country: JP (occurrence: JP)
  Receive Date: 20200608
  Receipt Date: 20200622
  Transmission Date: 20200714
  Serious: Yes (Hospitalization, Other)
  Sender: FDA-Public Use
  Company Number: JP-BAYER-2020-105759

PATIENT
  Age: 52 Year
  Sex: Female

DRUGS (1)
  1. MIRENA [Suspect]
     Active Substance: LEVONORGESTREL
     Indication: MENORRHAGIA
     Dosage: 20?G PER DAILY, CONTINUOUSLY
     Route: 015
     Dates: start: 20150305, end: 20200511

REACTIONS (2)
  - Device use issue [None]
  - Uterine cancer [Unknown]

NARRATIVE: CASE EVENT DATE: 202004
